FAERS Safety Report 6318644-9 (Version None)
Quarter: 2009Q3

REPORT INFORMATION
  Report Type: 
  Country: None (occurrence: None)
  Receive Date: 20090821
  Receipt Date: 20090812
  Transmission Date: 20100115
  Serious: Yes (Hospitalization, Other)
  Sender: FDA-Public Use
  Company Number: US-ABBOTT-09P-163-0590822-00

PATIENT
  Age: 57 Year
  Sex: Female
  Weight: 72.64 kg

DRUGS (17)
  1. DEPAKOTE [Suspect]
     Indication: DRUG USE FOR UNKNOWN INDICATION
  2. CHANTIX [Suspect]
     Indication: EX-TOBACCO USER
     Dates: start: 20090210
  3. CHANTIX [Suspect]
  4. DESYREL [Concomitant]
     Indication: INSOMNIA
  5. PROZAC [Concomitant]
     Indication: DEPRESSION
  6. ABILIFY [Concomitant]
     Indication: ANXIETY
  7. SENOKOT [Concomitant]
     Indication: DRUG USE FOR UNKNOWN INDICATION
  8. FERROUS SULFATE TAB [Concomitant]
     Indication: ANAEMIA
  9. ALBUTEROL [Concomitant]
     Indication: DRUG USE FOR UNKNOWN INDICATION
     Route: 055
  10. SIMCOR [Concomitant]
     Indication: DRUG USE FOR UNKNOWN INDICATION
  11. MULTI-VITAMINS [Concomitant]
     Indication: DRUG USE FOR UNKNOWN INDICATION
  12. RIFAMPIN [Concomitant]
     Indication: DRUG USE FOR UNKNOWN INDICATION
  13. AMBIEN [Concomitant]
     Indication: DRUG USE FOR UNKNOWN INDICATION
  14. FLEXERIL [Concomitant]
     Indication: DRUG USE FOR UNKNOWN INDICATION
  15. ZANTAC [Concomitant]
     Indication: DRUG USE FOR UNKNOWN INDICATION
  16. CLONAZEPAM [Concomitant]
     Indication: DRUG USE FOR UNKNOWN INDICATION
  17. TEFLEX [Concomitant]
     Indication: LOCALISED INFECTION

REACTIONS (7)
  - CYST [None]
  - FATIGUE [None]
  - HALLUCINATION [None]
  - HYPOAESTHESIA [None]
  - NAUSEA [None]
  - NERVE COMPRESSION [None]
  - SPINAL OPERATION [None]
